FAERS Safety Report 20924632 (Version 3)
Quarter: 2022Q3

REPORT INFORMATION
  Report Type: Report from Study
  Country: US (occurrence: None)
  Receive Date: 20220607
  Receipt Date: 20220727
  Transmission Date: 20221026
  Serious: Yes (Hospitalization)
  Sender: FDA-Public Use
  Company Number: US-Eisai Medical Research-EC-2022-116083

PATIENT
  Age: 57 Year
  Sex: Male

DRUGS (4)
  1. LENVIMA [Suspect]
     Active Substance: LENVATINIB
     Indication: Hepatocellular carcinoma
     Route: 048
     Dates: start: 20220224, end: 202203
  2. LENVIMA [Suspect]
     Active Substance: LENVATINIB
     Route: 048
     Dates: start: 202203, end: 20220527
  3. LENVIMA [Suspect]
     Active Substance: LENVATINIB
     Route: 048
     Dates: start: 202206, end: 202206
  4. LENVIMA [Suspect]
     Active Substance: LENVATINIB
     Dosage: TAKING 8 MG ALTERNATING WITH 12 MG
     Route: 048
     Dates: start: 202206

REACTIONS (9)
  - Gastrointestinal haemorrhage [Recovering/Resolving]
  - Gastric ulcer [Recovered/Resolved]
  - Diarrhoea [Recovering/Resolving]
  - Asthenia [Unknown]
  - Decreased appetite [Unknown]
  - Weight decreased [Recovering/Resolving]
  - Haematemesis [Recovering/Resolving]
  - Constipation [Unknown]
  - Nausea [Unknown]

NARRATIVE: CASE EVENT DATE: 20220101
